FAERS Safety Report 10572706 (Version 1)
Quarter: 2014Q4

REPORT INFORMATION
  Report Type: Spontaneous
  Country: FR (occurrence: None)
  Receive Date: 20141106
  Receipt Date: 20141106
  Transmission Date: 20150529
  Serious: Yes (Other)
  Sender: FDA-Public Use
  Company Number: FR2014GSK012889

PATIENT
  Age: 43 Year
  Sex: Male

DRUGS (3)
  1. KIVEXA [Suspect]
     Active Substance: ABACAVIR SULFATE\LAMIVUDINE
     Indication: HIV INFECTION
     Route: 048
     Dates: start: 20070116, end: 20121128
  2. PREZISTA(DARUNAVIR) [Concomitant]
  3. NORVIR(RITNONAVIR) [Concomitant]

REACTIONS (1)
  - Mitochondrial toxicity [None]

NARRATIVE: CASE EVENT DATE: 20101111
